FAERS Safety Report 15794226 (Version 4)
Quarter: 2019Q1

REPORT INFORMATION
  Report Type: Spontaneous
  Country: CA (occurrence: CA)
  Receive Date: 20190107
  Receipt Date: 20190128
  Transmission Date: 20190417
  Serious: Yes (Other)
  Sender: FDA-Public Use
  Company Number: CA-ALLERGAN-1900351US

PATIENT
  Age: 72 Year
  Sex: Male

DRUGS (2)
  1. RAPAFLO [Suspect]
     Active Substance: SILODOSIN
     Indication: URINE FLOW DECREASED
     Dosage: 4 MG, QD
     Route: 048
     Dates: start: 201712, end: 20181225
  2. RAPAFLO [Suspect]
     Active Substance: SILODOSIN
     Dosage: 4 MG, QD
     Route: 048
     Dates: start: 201710, end: 201711

REACTIONS (13)
  - Erectile dysfunction [Not Recovered/Not Resolved]
  - Penis disorder [Not Recovered/Not Resolved]
  - Urinary incontinence [Not Recovered/Not Resolved]
  - Retrograde ejaculation [Not Recovered/Not Resolved]
  - Retrograde ejaculation [Recovered/Resolved]
  - Nasal congestion [Recovering/Resolving]
  - Dizziness [Recovering/Resolving]
  - Renal disorder [Unknown]
  - Dizziness [Recovered/Resolved]
  - Cardiac disorder [Unknown]
  - Off label use [Unknown]
  - Erectile dysfunction [Recovered/Resolved]
  - Rhinorrhoea [Recovering/Resolving]

NARRATIVE: CASE EVENT DATE: 2017
